FAERS Safety Report 8045128-2 (Version None)
Quarter: 2012Q1

REPORT INFORMATION
  Report Type: 
  Country: None (occurrence: None)
  Receive Date: 20120111
  Receipt Date: 20120111
  Transmission Date: 20120608
  Serious: Yes (Life-Threatening, Other)
  Sender: FDA-Public Use
  Company Number: None

PATIENT
  Sex: Female
  Weight: 61.2356 kg

DRUGS (1)
  1. PERPHENAZINE [Suspect]
     Indication: CONFUSIONAL STATE
     Dosage: 2 MG 1 / DAILY
     Dates: start: 20111001

REACTIONS (4)
  - IMMOBILE [None]
  - WRONG TECHNIQUE IN DRUG USAGE PROCESS [None]
  - DYSPNOEA [None]
  - CHEST DISCOMFORT [None]
